FAERS Safety Report 25036218 (Version 1)
Quarter: 2025Q1

REPORT INFORMATION
  Report Type: Spontaneous
  Country: US (occurrence: None)
  Receive Date: 20250303
  Receipt Date: 20250303
  Transmission Date: 20250409
  Serious: Yes (Hospitalization)
  Sender: FDA-CTU
  Company Number: None

PATIENT
  Age: 46 Year
  Sex: Female
  Weight: 67.5 kg

DRUGS (1)
  1. PROHANCE [Suspect]
     Active Substance: GADOTERIDOL
     Dates: start: 20250303, end: 20250303

REACTIONS (2)
  - Contrast media reaction [None]
  - Type I hypersensitivity [None]

NARRATIVE: CASE EVENT DATE: 20250303
